FAERS Safety Report 9436918 (Version 1)
Quarter: 2013Q3

REPORT INFORMATION
  Report Type: Spontaneous
  Country: US (occurrence: US)
  Receive Date: 20130802
  Receipt Date: 20130802
  Transmission Date: 20140515
  Serious: No
  Sender: FDA-Public Use
  Company Number: US-PFIZER INC-2013224178

PATIENT
  Age: 60 Year
  Sex: Male
  Weight: 61.22 kg

DRUGS (5)
  1. LYRICA [Suspect]
     Indication: PAIN
     Dosage: 50 MG, 2X/DAY
     Route: 048
     Dates: start: 20130702, end: 201307
  2. LYRICA [Suspect]
     Indication: HYPOAESTHESIA
     Dosage: 75 MG, 2X/DAY
     Route: 048
     Dates: start: 201307
  3. VIAGRA [Suspect]
     Indication: ERECTILE DYSFUNCTION
     Dosage: 50 MG, AS NEEDED
     Route: 048
  4. LIPITOR [Concomitant]
     Dosage: 10 MG, UNK
  5. ATRIPLA [Concomitant]
     Dosage: UNK

REACTIONS (4)
  - Off label use [Unknown]
  - Hypoaesthesia [Unknown]
  - Therapeutic response unexpected [Unknown]
  - Libido decreased [Not Recovered/Not Resolved]
